FAERS Safety Report 13340060 (Version 1)
Quarter: 2017Q1

REPORT INFORMATION
  Report Type: Spontaneous
  Country: US (occurrence: US)
  Receive Date: 20170316
  Receipt Date: 20170316
  Transmission Date: 20170428
  Serious: No
  Sender: FDA-Public Use
  Company Number: US-LUPIN PHARMACEUTICALS INC.-2017-00386

PATIENT
  Sex: Male

DRUGS (2)
  1. RIFAMPIN. [Suspect]
     Active Substance: RIFAMPIN
     Dosage: 300 MG,BID,
     Route: 065
     Dates: start: 201411
  2. RIFAMPIN. [Suspect]
     Active Substance: RIFAMPIN
     Indication: RETINAL DETACHMENT
     Dosage: 300 MG,BID,
     Route: 065
     Dates: start: 201409, end: 201410

REACTIONS (1)
  - Hepatic enzyme increased [Recovered/Resolved]
